FAERS Safety Report 14782354 (Version 2)
Quarter: 2018Q2

REPORT INFORMATION
  Report Type: Spontaneous
  Country: US (occurrence: US)
  Receive Date: 20180420
  Receipt Date: 20180423
  Transmission Date: 20180711
  Serious: Yes (Other)
  Sender: FDA-Public Use
  Company Number: US-PFIZER INC-2018160463

PATIENT
  Age: 70 Year
  Sex: Male
  Weight: 72.57 kg

DRUGS (4)
  1. DIFLUCAN [Suspect]
     Active Substance: FLUCONAZOLE
     Dosage: 150 MG, AS NEEDED (THREE PILLS OF THE 150MG)
     Route: 048
     Dates: start: 201610
  2. DIFLUCAN [Suspect]
     Active Substance: FLUCONAZOLE
     Dosage: 350 MG, WEEKLY (FOR 6 MONTHS)
  3. DIFLUCAN [Suspect]
     Active Substance: FLUCONAZOLE
     Indication: URINARY TRACT INFECTION
     Dosage: 450 MG, UNK (3 PILLS OF 150 MG)
  4. DIFLUCAN [Suspect]
     Active Substance: FLUCONAZOLE
     Dosage: 1 DF, UNK (1 PILL THIS MORNING)
     Dates: start: 20180417

REACTIONS (6)
  - Hypotension [Unknown]
  - Squamous cell carcinoma [Unknown]
  - Dizziness postural [Unknown]
  - Heart rate irregular [Unknown]
  - Condition aggravated [Unknown]
  - Fungal infection [Not Recovered/Not Resolved]

NARRATIVE: CASE EVENT DATE: 201610
